FAERS Safety Report 9687826 (Version 3)
Quarter: 2013Q4

REPORT INFORMATION
  Report Type: Spontaneous
  Country: US (occurrence: US)
  Receive Date: 20131114
  Receipt Date: 20131128
  Transmission Date: 20140711
  Serious: Yes (Other)
  Sender: FDA-Public Use
  Company Number: US-JNJFOC-20131104271

PATIENT
  Age: 62 Year
  Sex: Male
  Weight: 80.74 kg

DRUGS (11)
  1. XARELTO [Suspect]
     Indication: CEREBROVASCULAR ACCIDENT PROPHYLAXIS
     Route: 048
     Dates: start: 2012
  2. XARELTO [Suspect]
     Indication: ATRIAL FIBRILLATION
     Route: 048
     Dates: start: 2012
  3. NAPROXEN [Suspect]
     Indication: PRODUCT USED FOR UNKNOWN INDICATION
     Route: 065
     Dates: end: 20130909
  4. LEVOTHYROXINE [Concomitant]
     Route: 065
  5. VITAMIN B12 [Concomitant]
     Route: 065
  6. VITAMIN C [Concomitant]
     Route: 065
  7. VITAMIN D3 [Concomitant]
     Dosage: 1000 U
     Route: 065
  8. GLUCOSAMINE [Concomitant]
     Route: 065
  9. POTASSIUM [Concomitant]
     Route: 065
  10. MAGNESIUM [Concomitant]
     Route: 065
  11. FLAXSEED [Concomitant]
     Route: 065

REACTIONS (4)
  - Prothrombin time prolonged [Unknown]
  - Activated partial thromboplastin time prolonged [Unknown]
  - Platelet aggregation abnormal [Unknown]
  - White blood cell count decreased [Recovered/Resolved]
